FAERS Safety Report 14969525 (Version 1)
Quarter: 2018Q2

REPORT INFORMATION
  Report Type: Report from Study
  Country: CA (occurrence: CA)
  Receive Date: 20180604
  Receipt Date: 20180604
  Transmission Date: 20180711
  Serious: Yes (Other)
  Sender: FDA-Public Use
  Company Number: PHHY2011CA06943

PATIENT
  Age: 53 Year
  Sex: Female

DRUGS (4)
  1. SANDOSTATIN LAR DEPOT [Suspect]
     Active Substance: OCTREOTIDE ACETATE
     Indication: DUMPING SYNDROME
     Dosage: 30 MG, TIW (EVERY THREE WEEKS)
     Route: 030
     Dates: start: 20000910
  2. OCTREOTIDE. [Suspect]
     Active Substance: OCTREOTIDE
     Indication: PRODUCT USED FOR UNKNOWN INDICATION
     Dosage: 100  UG (MCG) (TID PRN)
     Route: 058
  3. SANDOSTATIN [Suspect]
     Active Substance: OCTREOTIDE ACETATE
     Indication: PRODUCT USED FOR UNKNOWN INDICATION
     Route: 058
  4. VANCOMYCIN [Concomitant]
     Active Substance: VANCOMYCIN
     Indication: PRODUCT USED FOR UNKNOWN INDICATION
     Route: 065

REACTIONS (23)
  - Dyspnoea [Unknown]
  - Inappropriate schedule of drug administration [Unknown]
  - Muscle spasms [Unknown]
  - Malabsorption [Unknown]
  - Needle issue [Unknown]
  - Body temperature decreased [Unknown]
  - Blood pressure systolic increased [Unknown]
  - Abdominal discomfort [Unknown]
  - Malaise [Unknown]
  - Discomfort [Unknown]
  - General physical health deterioration [Unknown]
  - Myalgia [Unknown]
  - Myopathy [Unknown]
  - Diarrhoea [Unknown]
  - Injection site pain [Recovering/Resolving]
  - Product use in unapproved indication [Unknown]
  - Weight decreased [Unknown]
  - Injection site mass [Recovered/Resolved]
  - Renal failure [Unknown]
  - Incorrect dose administered [Unknown]
  - Injection site mass [Unknown]
  - Hypoglycaemia [Unknown]
  - Injection site haemorrhage [Unknown]

NARRATIVE: CASE EVENT DATE: 20000910
